FAERS Safety Report 4517265-8 (Version None)
Quarter: 2004Q4

REPORT INFORMATION
  Report Type: 
  Country: None (occurrence: None)
  Receive Date: 20041202
  Receipt Date: 20041105
  Transmission Date: 20050328
  Serious: Yes (Life-Threatening, Hospitalization)
  Sender: FDA-Public Use
  Company Number: HQWYE316409NOV04

PATIENT
  Sex: Female
  Weight: 51 kg

DRUGS (9)
  1. ENBREL [Suspect]
     Indication: RHEUMATOID ARTHRITIS
     Route: 058
     Dates: start: 20041019, end: 20041029
  2. PREDNISOLONE [Concomitant]
     Dosage: 5 MG UNSPECIFED FREQUENCY
     Route: 048
  3. ENZYMES [Concomitant]
  4. FOLIC ACID [Concomitant]
     Route: 048
  5. TRAMADOL [Concomitant]
  6. METHOTREXATE [Concomitant]
     Route: 048
  7. ACECLOFENAC [Concomitant]
  8. FUROSEMIDE [Concomitant]
  9. ALENDRONATE SODIUM [Concomitant]

REACTIONS (3)
  - DISSEMINATED INTRAVASCULAR COAGULATION [None]
  - PANCYTOPENIA [None]
  - SEPTIC SHOCK [None]
